FAERS Safety Report 11433714 (Version 1)
Quarter: 2015Q3

REPORT INFORMATION
  Report Type: Spontaneous
  Country: US (occurrence: US)
  Receive Date: 20150831
  Receipt Date: 20150831
  Transmission Date: 20151125
  Serious: Yes (Other)
  Sender: FDA-Public Use
  Company Number: US-ELI_LILLY_AND_COMPANY-US201508005598

PATIENT
  Sex: Female

DRUGS (2)
  1. AMYVID [Suspect]
     Active Substance: FLORBETAPIR F-18
     Indication: PRODUCT USED FOR UNKNOWN INDICATION
  2. ZYPREXA [Suspect]
     Active Substance: OLANZAPINE
     Indication: PRODUCT USED FOR UNKNOWN INDICATION

REACTIONS (7)
  - Musculoskeletal disorder [Unknown]
  - Menopausal disorder [Unknown]
  - Violence-related symptom [Unknown]
  - Dysarthria [Unknown]
  - Weight increased [Unknown]
  - Cerebral disorder [Unknown]
  - Skin disorder [Unknown]
